FAERS Safety Report 6306774-7 (Version None)
Quarter: 2009Q3

REPORT INFORMATION
  Report Type: 
  Country: None (occurrence: None)
  Receive Date: 20090811
  Receipt Date: 20090811
  Transmission Date: 20100115
  Serious: Yes (Other)
  Sender: FDA-Public Use
  Company Number: None

PATIENT
  Sex: Female
  Weight: 67.1324 kg

DRUGS (9)
  1. HUMIRA [Suspect]
     Indication: RHEUMATOID ARTHRITIS
     Dosage: 40MG EVERY OTHER WEEK SQ
     Route: 058
  2. OXYCODONE [Concomitant]
  3. BYETTA [Concomitant]
  4. NEXIUM [Concomitant]
  5. PREMARIN [Concomitant]
  6. DIAZEPAM [Concomitant]
  7. FUROSEMIDE [Concomitant]
  8. AMITIZA [Concomitant]
  9. PROMETHAZINE [Concomitant]

REACTIONS (1)
  - CHRONIC MYELOID LEUKAEMIA [None]
